FAERS Safety Report 7545175-0 (Version None)
Quarter: 2011Q2

REPORT INFORMATION
  Report Type: 
  Country: None (occurrence: None)
  Receive Date: 20110614
  Receipt Date: 20110601
  Transmission Date: 20111010
  Serious: Yes (Hospitalization, Other)
  Sender: FDA-Public Use
  Company Number: DE-ELI_LILLY_AND_COMPANY-DE201106000042

PATIENT
  Sex: Female

DRUGS (3)
  1. CORTISONE ACETATE [Concomitant]
     Dosage: 7.5 MG, UNKNOWN
     Route: 065
  2. CALCIUM +D3 [Concomitant]
     Dosage: UNK, UNKNOWN
     Route: 065
  3. FORTEO [Suspect]
     Indication: OSTEOPOROSIS
     Dosage: UNK, QD
     Route: 058
     Dates: start: 20100602

REACTIONS (7)
  - GAIT DISTURBANCE [None]
  - RIB FRACTURE [None]
  - BACK PAIN [None]
  - FALL [None]
  - DRUG DOSE OMISSION [None]
  - PAIN IN EXTREMITY [None]
  - WRIST FRACTURE [None]
